FAERS Safety Report 12970628 (Version 2)
Quarter: 2016Q4

REPORT INFORMATION
  Report Type: Spontaneous
  Country: FR (occurrence: FR)
  Receive Date: 20161123
  Receipt Date: 20161213
  Transmission Date: 20170207
  Serious: Yes (Hospitalization, Other)
  Sender: FDA-Public Use
  Company Number: FR-TEVA-711907ROM

PATIENT
  Age: 66 Year
  Sex: Female

DRUGS (4)
  1. DOXORUBICINE TEVA [Suspect]
     Active Substance: DOXORUBICIN
     Indication: SOFT TISSUE SARCOMA
     Route: 042
     Dates: start: 20160302, end: 20160302
  2. ARANESP [Concomitant]
     Active Substance: DARBEPOETIN ALFA
  3. DOXORUBICINE TEVA [Suspect]
     Active Substance: DOXORUBICIN
     Route: 042
     Dates: start: 20160413, end: 20160413
  4. DOXORUBICINE TEVA [Suspect]
     Active Substance: DOXORUBICIN
     Route: 042
     Dates: start: 20160504, end: 20160504

REACTIONS (2)
  - Febrile bone marrow aplasia [Recovered/Resolved]
  - Mucosal inflammation [Recovered/Resolved]

NARRATIVE: CASE EVENT DATE: 201605
